FAERS Safety Report 8201692-1 (Version None)
Quarter: 2012Q1

REPORT INFORMATION
  Report Type: 
  Country: None (occurrence: None)
  Receive Date: 20120312
  Receipt Date: 20120307
  Transmission Date: 20120608
  Serious: Yes (Hospitalization)
  Sender: FDA-Public Use
  Company Number: IT-ROCHE-1046711

PATIENT
  Sex: Male

DRUGS (8)
  1. DIAMICRON [Concomitant]
  2. PORTOLAC [Suspect]
     Indication: PRODUCT USED FOR UNKNOWN INDICATION
  3. CLONAZEPAM [Suspect]
     Indication: PRODUCT USED FOR UNKNOWN INDICATION
     Route: 048
     Dates: start: 20091221, end: 20091225
  4. GABAPENTIN [Concomitant]
     Route: 048
  5. DURAGESIC-100 [Suspect]
     Indication: MUSCULOSKELETAL PAIN
     Dosage: PATCHES
     Route: 062
     Dates: start: 20091221, end: 20091225
  6. ALFUZOSIN HCL [Concomitant]
  7. TRAMADOL HYDROCHLORIDE AND ACETAMINOPHEN [Suspect]
     Indication: MUSCULOSKELETAL PAIN
     Route: 048
     Dates: start: 20091221, end: 20091225
  8. DICLOFENAC SODIUM [Suspect]
     Indication: MUSCULOSKELETAL PAIN
     Route: 048
     Dates: start: 20091221, end: 20091225

REACTIONS (3)
  - VOMITING [None]
  - NAUSEA [None]
  - VERTIGO [None]
